FAERS Safety Report 7280630-2 (Version None)
Quarter: 2011Q1

REPORT INFORMATION
  Report Type: 
  Country: None (occurrence: None)
  Receive Date: 20110208
  Receipt Date: 20110204
  Transmission Date: 20110831
  Serious: Yes (Hospitalization)
  Sender: FDA-Public Use
  Company Number: A0757466A

PATIENT
  Age: 66 Year
  Sex: Male
  Weight: 90.9 kg

DRUGS (3)
  1. GLYBURIDE [Concomitant]
     Dates: start: 19950101, end: 20070501
  2. AVANDIA [Suspect]
     Dosage: 8MG PER DAY
     Route: 048
     Dates: start: 20001001, end: 20070501
  3. ATENOLOL [Concomitant]
     Dates: start: 19820101, end: 20050101

REACTIONS (4)
  - ATRIAL FIBRILLATION [None]
  - CORONARY ARTERY DISEASE [None]
  - RENAL FAILURE [None]
  - RENAL IMPAIRMENT [None]
